FAERS Safety Report 14995619 (Version 1)
Quarter: 2018Q2

REPORT INFORMATION
  Report Type: Spontaneous
  Country: FI (occurrence: FI)
  Receive Date: 20180611
  Receipt Date: 20180611
  Transmission Date: 20180711
  Serious: Yes (Hospitalization)
  Sender: FDA-Public Use
  Company Number: FI-SA-2018SA145061

PATIENT
  Age: 62 Year
  Sex: Female

DRUGS (5)
  1. THYROXIN [Concomitant]
     Active Substance: LEVOTHYROXINE
  2. ROSUVASTATIN. [Concomitant]
     Active Substance: ROSUVASTATIN
  3. KLEXANE [Suspect]
     Active Substance: ENOXAPARIN
     Indication: DEEP VEIN THROMBOSIS
     Dosage: 2 DF, QD
     Route: 058
     Dates: start: 20180330, end: 20180403
  4. BUDESONID EASYHALER [Concomitant]
     Active Substance: BUDESONIDE
  5. ENALAPRIL COMP [Concomitant]
     Active Substance: ENALAPRIL MALEATE\HYDROCHLOROTHIAZIDE

REACTIONS (6)
  - Injection site irritation [Recovering/Resolving]
  - Hepatic enzyme increased [Recovering/Resolving]
  - Injection site erythema [Recovering/Resolving]
  - Injection site mass [Recovering/Resolving]
  - Injection site haematoma [Recovering/Resolving]
  - Arthralgia [Recovering/Resolving]

NARRATIVE: CASE EVENT DATE: 20180330
